FAERS Safety Report 10052957 (Version 1)
Quarter: 2014Q2

REPORT INFORMATION
  Report Type: Spontaneous
  Country: FR (occurrence: FR)
  Receive Date: 20140402
  Receipt Date: 20140402
  Transmission Date: 20141212
  Serious: Yes (Hospitalization)
  Sender: FDA-Public Use
  Company Number: FR-SA-2014SA037716

PATIENT
  Age: 86 Year
  Sex: Female

DRUGS (10)
  1. DOLIPRANE [Suspect]
     Route: 065
     Dates: start: 20140224
  2. LOVENOX [Suspect]
     Route: 065
     Dates: start: 20140224
  3. FUMAFER [Suspect]
     Route: 065
     Dates: start: 20140226
  4. OFLOXACIN [Suspect]
     Route: 048
     Dates: start: 20140225, end: 20140301
  5. TRIVASTAL [Concomitant]
     Route: 048
  6. VENLAFAXINE [Concomitant]
     Route: 065
  7. VESICARE [Concomitant]
     Route: 048
  8. TAZOCILLINE [Concomitant]
     Route: 065
     Dates: start: 20140223
  9. CARDIOVASCULAR SYSTEM DRUGS [Concomitant]
     Route: 065
     Dates: start: 20140223
  10. CLAMOXYL [Concomitant]

REACTIONS (3)
  - Confusional state [Recovering/Resolving]
  - Sleep phase rhythm disturbance [Recovering/Resolving]
  - Incoherent [Recovering/Resolving]
